FAERS Safety Report 15961975 (Version 1)
Quarter: 2019Q1

REPORT INFORMATION
  Report Type: Spontaneous
  Country: US (occurrence: US)
  Receive Date: 20190214
  Receipt Date: 20190214
  Transmission Date: 20190417
  Serious: Yes (Other)
  Sender: FDA-Public Use
  Company Number: US-HORIZON-VIM-0067-2019

PATIENT
  Age: 63 Year
  Sex: Female

DRUGS (9)
  1. ACETAMINOPHIN [Concomitant]
  2. LOMOTIL [Concomitant]
     Active Substance: ATROPINE SULFATE\DIPHENOXYLATE HYDROCHLORIDE
  3. TAGRISSO [Suspect]
     Active Substance: OSIMERTINIB
     Indication: PRODUCT USED FOR UNKNOWN INDICATION
     Dosage: 40 MG PRN
     Route: 048
     Dates: start: 20180109
  4. ASPIRIN. [Concomitant]
     Active Substance: ASPIRIN
  5. VIMOVO [Suspect]
     Active Substance: ESOMEPRAZOLE MAGNESIUM\NAPROXEN
     Indication: PRODUCT USED FOR UNKNOWN INDICATION
     Route: 048
  6. HYDROCODONE [Concomitant]
     Active Substance: HYDROCODONE
  7. TRAMADOL. [Concomitant]
     Active Substance: TRAMADOL
  8. CHLORTHALIDONE. [Concomitant]
     Active Substance: CHLORTHALIDONE
  9. CLARITIN [Concomitant]
     Active Substance: LORATADINE

REACTIONS (6)
  - Osteoarthritis [Unknown]
  - Onychalgia [Recovering/Resolving]
  - Haemorrhage [Recovering/Resolving]
  - Nail disorder [Recovering/Resolving]
  - Onychoclasis [Recovering/Resolving]
  - Ulcer [Unknown]
